FAERS Safety Report 4335528-6 (Version None)
Quarter: 2004Q1

REPORT INFORMATION
  Report Type: 
  Country: None (occurrence: None)
  Receive Date: 20040330
  Receipt Date: 20040219
  Transmission Date: 20041129
  Serious: No
  Sender: FDA-Public Use
  Company Number: 27794

PATIENT
  Age: 80 Year
  Sex: Female

DRUGS (5)
  1. TRAVATAN [Suspect]
     Indication: GLAUCOMA
  2. TIMOLOL MALEATE [Suspect]
     Indication: GLAUCOMA
  3. TAMOXIFEN CITRATE [Concomitant]
  4. ARICEPT [Concomitant]
  5. NAMENDA [Concomitant]

REACTIONS (2)
  - DRY SKIN [None]
  - SKIN HYPERPIGMENTATION [None]
